FAERS Safety Report 21940577 (Version 1)
Quarter: 2023Q1

REPORT INFORMATION
  Report Type: Report from Study
  Country: US (occurrence: US)
  Receive Date: 20230201
  Receipt Date: 20230201
  Transmission Date: 20230418
  Serious: No
  Sender: FDA-Public Use
  Company Number: US-EXELIXIS-CABO-22051261

PATIENT
  Sex: Male

DRUGS (10)
  1. CABOMETYX [Suspect]
     Active Substance: CABOZANTINIB S-MALATE
     Indication: Renal cancer
     Dosage: 40 MG, QD
     Route: 048
     Dates: start: 20220412
  2. CABOMETYX [Suspect]
     Active Substance: CABOZANTINIB S-MALATE
     Dosage: 40 MG, QD
     Route: 048
  3. ATENOLOL [Concomitant]
     Active Substance: ATENOLOL
  4. FAMOTIDINE [Concomitant]
     Active Substance: FAMOTIDINE
  5. LISINOPRIL [Concomitant]
     Active Substance: LISINOPRIL
  6. OXYCODONE [Concomitant]
     Active Substance: OXYCODONE
  7. SIMVASTATIN [Concomitant]
     Active Substance: SIMVASTATIN
  8. VITAMIN D3 [Concomitant]
     Active Substance: CHOLECALCIFEROL
  9. QUINAPRIL [Concomitant]
     Active Substance: QUINAPRIL
  10. NADOLOL [Concomitant]
     Active Substance: NADOLOL

REACTIONS (8)
  - Abdominal discomfort [Unknown]
  - Bone neoplasm [Recovering/Resolving]
  - Nausea [Unknown]
  - Taste disorder [Unknown]
  - Decreased appetite [Unknown]
  - Fatigue [Unknown]
  - Tumour pain [Recovering/Resolving]
  - Product dose omission issue [Unknown]
